FAERS Safety Report 6920986-0 (Version None)
Quarter: 2010Q3

REPORT INFORMATION
  Report Type: 
  Country: None (occurrence: None)
  Receive Date: 20100812
  Receipt Date: 20100802
  Transmission Date: 20110219
  Serious: Yes (Other)
  Sender: FDA-Public Use
  Company Number: US-WATSON-2010-02970

PATIENT
  Sex: Female

DRUGS (6)
  1. ALENDRONATE SODIUM [Suspect]
     Indication: OSTEOPOROSIS
     Dosage: 1 TABLET, 1/WEEK
     Route: 048
  2. ALENDRONATE SODIUM [Suspect]
     Dosage: 1 TABLET, 1/WEEK
     Route: 048
     Dates: start: 20100220
  3. ALENDRONATE SODIUM [Suspect]
     Dosage: 1 TABLET, 1/WEEK
     Route: 048
     Dates: start: 20070101, end: 20100213
  4. ALLEGRA [Concomitant]
     Indication: HYPERSENSITIVITY
     Dosage: 1 TABLET, DAILY
     Route: 048
     Dates: start: 20020101
  5. BUMEX [Concomitant]
     Indication: OEDEMA PERIPHERAL
     Dosage: 1 TABLET, DAILY
     Route: 048
     Dates: start: 20020101
  6. LEVOTHROID [Concomitant]
     Indication: HYPOTHYROIDISM
     Dosage: 1 TABLET, DAILY
     Route: 048

REACTIONS (5)
  - FALL [None]
  - HUMERUS FRACTURE [None]
  - RIB FRACTURE [None]
  - ULNA FRACTURE [None]
  - WRIST FRACTURE [None]
